FAERS Safety Report 15076692 (Version 2)
Quarter: 2018Q3

REPORT INFORMATION
  Report Type: Report from Study
  Country: PL (occurrence: PL)
  Receive Date: 20180627
  Receipt Date: 20180702
  Transmission Date: 20181010
  Serious: Yes (Hospitalization, Other)
  Sender: FDA-Public Use
  Company Number: PL-B.I. PHARMACEUTICALS,INC./RIDGEFIELD-2018-BI-006889

PATIENT
  Age: 71 Year
  Sex: Female
  Weight: 73 kg

DRUGS (2)
  1. DABIGATRAN [Suspect]
     Active Substance: DABIGATRAN
     Indication: CEREBRAL VENOUS THROMBOSIS
     Route: 048
     Dates: start: 20171107, end: 20180126
  2. ESSENTIALE FORTE N [Concomitant]
     Indication: PROPHYLAXIS
     Dosage: 6 CAPS/ DAY
     Route: 048

REACTIONS (3)
  - Intestinal haematoma [Recovered/Resolved]
  - Vomiting [Recovered/Resolved]
  - Gastrointestinal necrosis [Recovered/Resolved]

NARRATIVE: CASE EVENT DATE: 20180126
